FAERS Safety Report 7576917-6 (Version None)
Quarter: 2011Q2

REPORT INFORMATION
  Report Type: 
  Country: None (occurrence: None)
  Receive Date: 20110628
  Receipt Date: 20101202
  Transmission Date: 20111010
  Serious: Yes (Death)
  Sender: FDA-Public Use
  Company Number: US-BAYER-200924003NA

PATIENT
  Sex: Female
  Weight: 95.238 kg

DRUGS (28)
  1. MAGNEVIST [Suspect]
     Indication: NUCLEAR MAGNETIC RESONANCE IMAGING
     Dosage: 70 ML, UNK
     Route: 042
     Dates: start: 20040615, end: 20040615
  2. MAGNEVIST [Suspect]
     Dosage: UNK
     Route: 042
     Dates: start: 20040617, end: 20040617
  3. OMNISCAN [Suspect]
     Indication: NUCLEAR MAGNETIC RESONANCE IMAGING
  4. NEURONTIN [Concomitant]
     Dosage: UNK
  5. MULTIHANCE [Suspect]
     Dosage: 45 ML, UNK
     Route: 042
     Dates: start: 20070620, end: 20070620
  6. METOPROLOL TARTRATE [Concomitant]
  7. AMLODIPINE [Concomitant]
  8. MAGNEVIST [Suspect]
     Dosage: UNK
     Route: 042
     Dates: start: 20061129, end: 20061129
  9. PROHANCE [Suspect]
     Indication: NUCLEAR MAGNETIC RESONANCE IMAGING
  10. VALSARTAN [Concomitant]
  11. ISOSORBIDE MONONITRATE [Concomitant]
  12. PERCOCET [Concomitant]
  13. MAGNEVIST [Suspect]
     Dosage: UNK
     Route: 042
     Dates: start: 20060427, end: 20060427
  14. MAGNEVIST [Suspect]
     Dosage: UNK
     Route: 042
     Dates: start: 20060505, end: 20060505
  15. MAGNEVIST [Suspect]
     Dosage: UNK
     Route: 042
     Dates: start: 20070304, end: 20070304
  16. MULTIHANCE [Suspect]
     Indication: NUCLEAR MAGNETIC RESONANCE IMAGING
     Dosage: 60 ML, UNK
     Route: 042
     Dates: start: 20070416, end: 20070416
  17. LASIX [Concomitant]
  18. ROXICODONE [Concomitant]
  19. MAGNEVIST [Suspect]
     Dosage: UNK
     Route: 042
     Dates: start: 20051118, end: 20051118
  20. MAGNEVIST [Suspect]
     Dosage: 20 ML, UNK
     Route: 042
     Dates: start: 20051120, end: 20051120
  21. OPTIMARK [Suspect]
     Indication: NUCLEAR MAGNETIC RESONANCE IMAGING
  22. ACETYLSALICYLIC ACID SRT [Concomitant]
     Dosage: UNK
  23. DIOVAN [Concomitant]
  24. MAGNEVIST [Suspect]
     Dosage: 12 ML, UNK
     Route: 042
     Dates: start: 20061106, end: 20061106
  25. MAGNEVIST [Suspect]
     Dosage: UNK
     Route: 042
     Dates: start: 20061127, end: 20061127
  26. CLONIDINE [Concomitant]
  27. HYDRALAZINE HCL [Concomitant]
     Dosage: UNK
  28. INSULIN [Concomitant]
     Dosage: UNK

REACTIONS (11)
  - DEFORMITY [None]
  - GENERAL PHYSICAL HEALTH DETERIORATION [None]
  - SKIN TIGHTNESS [None]
  - MUSCULOSKELETAL STIFFNESS [None]
  - SCAR [None]
  - NEPHROGENIC SYSTEMIC FIBROSIS [None]
  - PAIN [None]
  - MOBILITY DECREASED [None]
  - JOINT CONTRACTURE [None]
  - JOINT STIFFNESS [None]
  - SKIN HYPERTROPHY [None]
